FAERS Safety Report 9929756 (Version 1)
Quarter: 2014Q1

REPORT INFORMATION
  Report Type: Spontaneous
  Country: BR (occurrence: BR)
  Receive Date: 20140227
  Receipt Date: 20140227
  Transmission Date: 20141002
  Serious: Yes (Other)
  Sender: FDA-Public Use
  Company Number: BR-009507513-1402BRA012531

PATIENT
  Sex: Male
  Weight: 82 kg

DRUGS (6)
  1. LOSARTAN POTASSIUM [Suspect]
     Indication: HYPERTENSION
     Dosage: UNK
     Route: 048
  2. OMEPRAZOLE [Concomitant]
     Dosage: UNK
  3. DAFLON (DIOSMIN (+) HESPERIDIN) [Concomitant]
     Dosage: UNK
  4. ATENOLOL [Concomitant]
     Dosage: UNK
  5. CITALOR [Concomitant]
     Dosage: UNK
  6. HIGROTON [Concomitant]
     Dosage: UNK

REACTIONS (3)
  - Prostate cancer [Not Recovered/Not Resolved]
  - Dyslipidaemia [Not Recovered/Not Resolved]
  - Nephrolithiasis [Not Recovered/Not Resolved]
